FAERS Safety Report 23452641 (Version 1)
Quarter: 2024Q1

REPORT INFORMATION
  Report Type: Spontaneous
  Country: GB (occurrence: None)
  Receive Date: 20240129
  Receipt Date: 20240129
  Transmission Date: 20240409
  Serious: Yes (Hospitalization)
  Sender: FDA-Public Use
  Company Number: 2024A020054

PATIENT
  Age: 62 Year
  Sex: Female
  Weight: 84 kg

DRUGS (2)
  1. DAPAGLIFLOZIN [Suspect]
     Active Substance: DAPAGLIFLOZIN
     Dosage: AT THE SAME TIME EACH DAY
     Dates: start: 20231205
  2. COMIRNATY (RAXTOZINAMERAN) [Concomitant]
     Active Substance: RAXTOZINAMERAN
     Dosage: 0.3 ML INTRAMUSCULAR ROUTE (QUALIFIER VALUE)0.3ML UNKNOWN
     Dates: start: 20231114, end: 20231114

REACTIONS (1)
  - Ketosis-prone diabetes mellitus [Recovered/Resolved]

NARRATIVE: CASE EVENT DATE: 20240112
